FAERS Safety Report 5087058-4 (Version None)
Quarter: 2006Q3

REPORT INFORMATION
  Report Type: 
  Country: None (occurrence: None)
  Receive Date: 20060821
  Receipt Date: 20060810
  Transmission Date: 20061208
  Serious: Yes (Hospitalization, Other)
  Sender: FDA-Public Use
  Company Number: 2006099038

PATIENT
  Age: 66 Year
  Sex: Male

DRUGS (18)
  1. CELEBREX [Suspect]
     Indication: DRUG USE FOR UNKNOWN INDICATION
     Dates: end: 20060509
  2. ARAVA [Suspect]
     Indication: RHEUMATOID ARTHRITIS
     Dosage: 20 MG, 1 IN 1 D
     Dates: start: 19970101, end: 20060509
  3. VALSARTAN [Concomitant]
  4. ALBUTEROL [Concomitant]
  5. LOPRESSOR [Concomitant]
  6. MIRAPEX [Concomitant]
  7. MONTELUKAST SODIUM (MONTELUKAST SODIUM) [Concomitant]
  8. PANTOPRAZOLE SODIUM [Concomitant]
  9. PREVACID [Concomitant]
  10. LOTRIMIN [Concomitant]
  11. LIPITOR [Concomitant]
  12. CLONAZEPAM [Concomitant]
  13. FLOVENT [Concomitant]
  14. HYDROCHLOROTHIAZIDE [Concomitant]
  15. SEREVENT [Concomitant]
  16. PAXIL [Concomitant]
  17. CARDURA [Concomitant]
  18. WELLBUTRIN [Concomitant]

REACTIONS (12)
  - BALANCE DISORDER [None]
  - DIZZINESS [None]
  - DRUG INEFFECTIVE [None]
  - ERYTHEMA [None]
  - GAIT DISTURBANCE [None]
  - HAEMORRHAGIC STROKE [None]
  - LOCALISED INFECTION [None]
  - OEDEMA PERIPHERAL [None]
  - PARALYSIS [None]
  - RED BLOOD CELL COUNT DECREASED [None]
  - VOMITING [None]
  - WHITE BLOOD CELL COUNT DECREASED [None]
